FAERS Safety Report 4553180-1 (Version None)
Quarter: 2005Q1

REPORT INFORMATION
  Report Type: 
  Country: None (occurrence: None)
  Receive Date: 20050113
  Receipt Date: 20050106
  Transmission Date: 20050727
  Serious: No
  Sender: FDA-Public Use
  Company Number: 2005UW00207

PATIENT
  Age: 74 Year
  Sex: Female

DRUGS (1)
  1. NEXIUM [Suspect]

REACTIONS (5)
  - ABDOMINAL PAIN [None]
  - BILE DUCT STONE [None]
  - CHOLELITHIASIS [None]
  - OEDEMA [None]
  - OEDEMA PERIPHERAL [None]
